FAERS Safety Report 9932954 (Version 1)
Quarter: 2014Q1

REPORT INFORMATION
  Report Type: Spontaneous
  Country: US (occurrence: US)
  Receive Date: 20140228
  Receipt Date: 20140228
  Transmission Date: 20141002
  Serious: No
  Sender: FDA-Public Use
  Company Number: US-GLAXOSMITHKLINE-A1041560A

PATIENT
  Sex: Female

DRUGS (2)
  1. LAMOTRIGINE [Suspect]
     Indication: DEPRESSION
     Route: 048
  2. LAMICTAL [Suspect]
     Indication: DEPRESSION
     Route: 065
     Dates: start: 2005

REACTIONS (7)
  - Anxiety [Recovered/Resolved]
  - Depression [Recovered/Resolved]
  - Affective disorder [Recovered/Resolved]
  - Drug ineffective [Recovered/Resolved]
  - Affect lability [Recovered/Resolved]
  - Feeling abnormal [Recovered/Resolved]
  - Medication error [Unknown]
